FAERS Safety Report 4290489-3 (Version None)
Quarter: 2004Q1

REPORT INFORMATION
  Report Type: 
  Country: None (occurrence: None)
  Receive Date: 20040126
  Receipt Date: 20030917
  Transmission Date: 20041129
  Serious: No
  Sender: FDA-Public Use
  Company Number: USA030434268

PATIENT
  Age: 63 Year
  Sex: Female
  Weight: 70 kg

DRUGS (4)
  1. FORTEO [Suspect]
     Indication: OSTEOPOROSIS
     Dosage: 20 UG/AT BEDTIME
     Dates: start: 20030330, end: 20030916
  2. CELEBREX [Concomitant]
  3. CORZIDE (BENDROFLUMETHIAZIDE) [Concomitant]
  4. MULTI-VITAMIN [Concomitant]

REACTIONS (7)
  - ASTHENIA [None]
  - BACK PAIN [None]
  - BONE PAIN [None]
  - DISCOMFORT [None]
  - HEART RATE INCREASED [None]
  - MUSCLE CRAMP [None]
  - PAIN IN EXTREMITY [None]
